FAERS Safety Report 4382283-X (Version None)
Quarter: 2004Q2

REPORT INFORMATION
  Report Type: 
  Country: None (occurrence: None)
  Receive Date: 20040622
  Receipt Date: 20040611
  Transmission Date: 20050107
  Serious: Yes (Other)
  Sender: FDA-Public Use
  Company Number: PHEH2004US06446

PATIENT
  Age: 79 Year
  Sex: Female

DRUGS (1)
  1. LESCOL [Suspect]
     Dosage: 40 MG, QD
     Dates: start: 19990101, end: 20030101

REACTIONS (6)
  - HEPATITIS [None]
  - INFLAMMATION [None]
  - JAUNDICE [None]
  - LIVER FUNCTION TEST ABNORMAL [None]
  - RENAL MASS [None]
  - WEIGHT DECREASED [None]
